FAERS Safety Report 22598558 (Version 5)
Quarter: 2023Q4

REPORT INFORMATION
  Report Type: Spontaneous
  Country: US (occurrence: US)
  Receive Date: 20230614
  Receipt Date: 20231229
  Transmission Date: 20240109
  Serious: Yes (Other)
  Sender: FDA-Public Use
  Company Number: US-BRISTOL-MYERS SQUIBB COMPANY-2023-083398

PATIENT
  Age: 65 Year
  Sex: Female
  Weight: 54.43 kg

DRUGS (3)
  1. REVLIMID [Suspect]
     Active Substance: LENALIDOMIDE
     Indication: B-cell lymphoma
     Dosage: ONCE DAILY
     Route: 048
     Dates: start: 20230501
  2. REVLIMID [Suspect]
     Active Substance: LENALIDOMIDE
     Indication: Non-Hodgkin^s lymphoma
     Dosage: 21D ON 7D OFF
     Route: 048
     Dates: start: 20230517
  3. REVLIMID [Suspect]
     Active Substance: LENALIDOMIDE
     Indication: Marginal zone lymphoma

REACTIONS (6)
  - Constipation [Unknown]
  - Herpes zoster [Unknown]
  - Off label use [Unknown]
  - Fatigue [Unknown]
  - Thrombosis [Unknown]
  - Neutropenia [Unknown]

NARRATIVE: CASE EVENT DATE: 20230801
